FAERS Safety Report 4522799-6 (Version None)
Quarter: 2004Q4

REPORT INFORMATION
  Report Type: 
  Country: None (occurrence: None)
  Receive Date: 20041208
  Receipt Date: 20041122
  Transmission Date: 20050328
  Serious: Yes (Hospitalization)
  Sender: FDA-Public Use
  Company Number: S04-SWE-07600-01

PATIENT
  Age: 30 Year
  Sex: Female

DRUGS (2)
  1. CITALOPRAM HYDROBROMIDE [Suspect]
     Indication: DEPRESSION
     Dosage: 20 MG QD PO
     Route: 048
     Dates: start: 20030101
  2. VENLAFAXINE DEPOT VENLAFAXINE0 [Concomitant]

REACTIONS (5)
  - DRUG EXPOSURE DURING PREGNANCY [None]
  - INTRA-UTERINE DEATH [None]
  - PLACENTAL DISORDER [None]
  - UTERINE CONTRACTIONS DURING PREGNANCY [None]
  - VAGINAL HAEMORRHAGE [None]
